FAERS Safety Report 15407889 (Version 8)
Quarter: 2018Q4

REPORT INFORMATION
  Report Type: Spontaneous
  Country: ES (occurrence: ES)
  Receive Date: 20180920
  Receipt Date: 20181217
  Transmission Date: 20190204
  Serious: Yes (Other)
  Sender: FDA-Public Use
  Company Number: ES-JNJFOC-20180905691

PATIENT
  Age: 23 Year
  Sex: Male

DRUGS (12)
  1. ENBREL [Suspect]
     Active Substance: ETANERCEPT
     Indication: PSORIATIC ARTHROPATHY
     Route: 065
     Dates: start: 201212
  2. ACOXXEL [Suspect]
     Active Substance: ETORICOXIB
     Indication: PSORIATIC ARTHROPATHY
     Route: 048
     Dates: start: 201312, end: 20141010
  3. ARCOXIA [Suspect]
     Active Substance: ETORICOXIB
     Indication: PSORIATIC ARTHROPATHY
     Route: 048
     Dates: end: 201307
  4. ARCOXIA [Suspect]
     Active Substance: ETORICOXIB
     Indication: PSORIATIC ARTHROPATHY
     Route: 048
     Dates: start: 20141010
  5. SIMPONI [Suspect]
     Active Substance: GOLIMUMAB
     Indication: PSORIATIC ARTHROPATHY
     Route: 058
     Dates: start: 2013
  6. ACOXXEL [Suspect]
     Active Substance: ETORICOXIB
     Indication: PSORIATIC ARTHROPATHY
     Route: 048
     Dates: start: 201312, end: 20140227
  7. ACOXXEL [Suspect]
     Active Substance: ETORICOXIB
     Indication: PSORIATIC ARTHROPATHY
     Dosage: 90 MG, THREE TIMES PER WEEK
     Route: 048
     Dates: start: 20141010
  8. SIMPONI [Suspect]
     Active Substance: GOLIMUMAB
     Indication: PSORIATIC ARTHROPATHY
     Route: 058
     Dates: start: 20121218, end: 20130106
  9. ARCOXIA [Suspect]
     Active Substance: ETORICOXIB
     Indication: PSORIATIC ARTHROPATHY
     Route: 048
     Dates: start: 201312, end: 20141010
  10. OMEPRAZOLE. [Concomitant]
     Active Substance: OMEPRAZOLE
     Route: 065
  11. ACOXXEL [Suspect]
     Active Substance: ETORICOXIB
     Indication: PSORIATIC ARTHROPATHY
     Route: 048
     Dates: start: 20121218, end: 201307
  12. DACORTIN [Suspect]
     Active Substance: PREDNISONE
     Indication: PSORIATIC ARTHROPATHY
     Route: 065
     Dates: start: 20121218

REACTIONS (13)
  - Prerenal failure [Recovered/Resolved]
  - Psoriasis [Recovered/Resolved]
  - Off label use [Unknown]
  - Drug ineffective for unapproved indication [Recovered/Resolved]
  - Gastroenteritis bacterial [Recovered/Resolved]
  - Myofascial pain syndrome [Recovered/Resolved]
  - Sacroiliitis [Recovered/Resolved]
  - Joint dislocation [Unknown]
  - Tenosynovitis [Recovered/Resolved]
  - Plantar fasciitis [Unknown]
  - Aspartate aminotransferase increased [Unknown]
  - Metabolic syndrome [Unknown]
  - Inappropriate schedule of product administration [Unknown]

NARRATIVE: CASE EVENT DATE: 2012
